FAERS Safety Report 8591011-3 (Version None)
Quarter: 2012Q3

REPORT INFORMATION
  Report Type: 
  Country: None (occurrence: None)
  Receive Date: 20120813
  Receipt Date: 20120807
  Transmission Date: 20120928
  Serious: Yes (Hospitalization, Other)
  Sender: FDA-Public Use
  Company Number: FR-PFIZER INC-2012154252

PATIENT
  Age: 56 Year
  Sex: Male

DRUGS (5)
  1. PERINDOPRIL ERBUMINE [Suspect]
     Dosage: UNK
     Route: 048
     Dates: start: 20090301
  2. ATORVASTATIN [Suspect]
     Dosage: 40 MG, UNK
     Route: 048
     Dates: start: 20090301
  3. REMICADE [Suspect]
     Indication: CROHN'S DISEASE
     Dosage: 100 MG, UNK
     Route: 041
     Dates: start: 20100601, end: 20110601
  4. BISOPROLOL FUMARATE [Suspect]
     Dosage: UNK
     Route: 048
     Dates: start: 20090301
  5. LASIX [Suspect]
     Dosage: UNK
     Route: 048
     Dates: start: 20090301

REACTIONS (3)
  - INTERSTITIAL LUNG DISEASE [None]
  - OEDEMA PERIPHERAL [None]
  - RESPIRATORY FAILURE [None]
